FAERS Safety Report 5110885-1 (Version None)
Quarter: 2006Q3

REPORT INFORMATION
  Report Type: 
  Country: None (occurrence: None)
  Receive Date: 20060919
  Receipt Date: 20060905
  Transmission Date: 20061208
  Serious: Yes (Other)
  Sender: FDA-Public Use
  Company Number: 2006107970

PATIENT
  Age: 53 Year
  Sex: Male

DRUGS (2)
  1. MACUGEN [Suspect]
     Indication: MACULAR DEGENERATION
     Dates: start: 20060904
  2. DRUG (DRUG) [Concomitant]

REACTIONS (6)
  - BLINDNESS TRANSIENT [None]
  - EYE PAIN [None]
  - HYPERAEMIA [None]
  - INJECTION SITE REACTION [None]
  - INTRAOCULAR PRESSURE INCREASED [None]
  - VISUAL DISTURBANCE [None]
